FAERS Safety Report 4577552-4 (Version None)
Quarter: 2005Q1

REPORT INFORMATION
  Report Type: 
  Country: None (occurrence: None)
  Receive Date: 20050127
  Receipt Date: 20041013
  Transmission Date: 20050727
  Serious: No
  Sender: FDA-Public Use
  Company Number: US_0410106256

PATIENT
  Sex: Male

DRUGS (7)
  1. STRATTERA [Suspect]
     Indication: ATTENTION DEFICIT/HYPERACTIVITY DISORDER
     Dosage: 40 MG/2 DAY
     Dates: start: 20040301
  2. LISINOPRIL [Concomitant]
  3. HYDOCHLOROTHIAZIDE [Concomitant]
  4. GLYBURIDE [Concomitant]
  5. METFORMIN [Concomitant]
  6. ACTOS [Concomitant]
  7. PAROXETINE HCL [Concomitant]

REACTIONS (1)
  - PROSTATE TENDERNESS [None]
